FAERS Safety Report 19201081 (Version 1)
Quarter: 2021Q2

REPORT INFORMATION
  Report Type: Spontaneous
  Country: HR (occurrence: HR)
  Receive Date: 20210430
  Receipt Date: 20210430
  Transmission Date: 20210717
  Serious: Yes (Hospitalization, Other)
  Sender: FDA-Public Use
  Company Number: HR-FRESENIUS KABI-FK202104241

PATIENT
  Age: 76 Year
  Sex: Male

DRUGS (2)
  1. RAMUCIRUMAB [Suspect]
     Active Substance: RAMUCIRUMAB
     Indication: ADENOCARCINOMA GASTRIC
     Dosage: FIRST?LINE CHEMOTHERAPY, ON DAY 1 AND DAY 15 EVERY 4 WEEKS
     Route: 065
     Dates: start: 201809
  2. PACLITAXEL (MANUFACTURER UNKNOWN) [Suspect]
     Active Substance: PACLITAXEL
     Indication: ADENOCARCINOMA GASTRIC
     Dosage: FIRST?LINE CHEMOTHERAPY, ON DAY 1, DAY 8, AND DAY 15 EVERY 4 WEEKS
     Route: 065
     Dates: start: 201809

REACTIONS (5)
  - Abdominal pain upper [Unknown]
  - Fatigue [Unknown]
  - Generalised oedema [Unknown]
  - Fournier^s gangrene [Unknown]
  - Oliguria [Unknown]
